FAERS Safety Report 20305512 (Version 3)
Quarter: 2022Q1

REPORT INFORMATION
  Report Type: Spontaneous
  Country: US (occurrence: US)
  Receive Date: 20220106
  Receipt Date: 20220207
  Transmission Date: 20220424
  Serious: Yes (Other)
  Sender: FDA-Public Use
  Company Number: US-PFIZER INC-202101676403

PATIENT
  Age: 48 Year
  Sex: Female
  Weight: 83.447 kg

DRUGS (1)
  1. IBRANCE [Suspect]
     Active Substance: PALBOCICLIB
     Indication: Breast cancer female
     Dosage: 125 MG, CYCLIC (ONCE DAILY FOR 21 DAYS THEN 7 DAYS OFF)
     Route: 048
     Dates: start: 20210804

REACTIONS (11)
  - Haematemesis [Unknown]
  - Pancreatitis [Unknown]
  - White blood cell count decreased [Unknown]
  - Red blood cell count decreased [Unknown]
  - Fatigue [Unknown]
  - Somnolence [Unknown]
  - Dizziness [Unknown]
  - Stomatitis [Unknown]
  - Pain [Unknown]
  - Gastric disorder [Unknown]
  - Duodenitis [Unknown]

NARRATIVE: CASE EVENT DATE: 20210101
